FAERS Safety Report 8114900-2 (Version None)
Quarter: 2012Q1

REPORT INFORMATION
  Report Type: 
  Country: None (occurrence: None)
  Receive Date: 20120201
  Receipt Date: 20120117
  Transmission Date: 20120608
  Serious: Yes (Other)
  Sender: FDA-Public Use
  Company Number: US-1188966

PATIENT
  Age: 81 Year
  Sex: Female
  Weight: 104.3273 kg

DRUGS (6)
  1. PREDNISOLONE ACETATE [Suspect]
     Indication: PREOPERATIVE CARE
     Dosage: 1 GTT BID, OD, OPHTHALMIC
     Route: 047
     Dates: end: 20110924
  2. PREDNISOLONE ACETATE [Suspect]
     Indication: POSTOPERATIVE CARE
     Dosage: 1 GTT BID, OD, OPHTHALMIC
     Route: 047
     Dates: end: 20110924
  3. VIGAMOX [Suspect]
     Indication: POSTOPERATIVE CARE
     Dosage: 1 GTT BID, OO OPTHALMIC
     Route: 047
     Dates: end: 20110924
  4. VIGAMOX [Suspect]
     Indication: PREOPERATIVE CARE
     Dosage: 1 GTT BID, OO OPTHALMIC
     Route: 047
     Dates: end: 20110924
  5. BSS [Suspect]
     Indication: CATARACT OPERATION
     Dosage: INTRAOCULAR
     Route: 031
     Dates: start: 20110919, end: 20110919
  6. BROMDAY [Suspect]
     Indication: POSTOPERATIVE CARE
     Dosage: QD OPHTHALMIC
     Route: 047

REACTIONS (8)
  - BLINDNESS UNILATERAL [None]
  - POST PROCEDURAL COMPLICATION [None]
  - INTRAOCULAR PRESSURE INCREASED [None]
  - CORNEAL DISORDER [None]
  - EYE PAIN [None]
  - ENDOPHTHALMITIS [None]
  - HYPOTONY OF EYE [None]
  - RETINAL DETACHMENT [None]
